FAERS Safety Report 14957443 (Version 3)
Quarter: 2018Q2

REPORT INFORMATION
  Report Type: Spontaneous
  Country: FR (occurrence: FR)
  Receive Date: 20180531
  Receipt Date: 20180601
  Transmission Date: 20180711
  Serious: Yes (Death, Congenital Anomaly)
  Sender: FDA-Public Use
  Company Number: FR-PFIZER INC-2018218833

PATIENT
  Sex: Female

DRUGS (4)
  1. CELLCEPT [Suspect]
     Active Substance: MYCOPHENOLATE MOFETIL\MYCOPHENOLATE MOFETIL HYDROCHLORIDE
     Dosage: 500 MG, QD
     Route: 064
     Dates: start: 201712, end: 20180222
  2. TENORMINE [Suspect]
     Active Substance: ATENOLOL
     Dosage: 25 MG, QD
     Route: 064
     Dates: start: 201712
  3. ADVAGRAF [Suspect]
     Active Substance: TACROLIMUS
     Dosage: 1.5 MG, QD
     Route: 064
  4. INIPOMP [Suspect]
     Active Substance: PANTOPRAZOLE SODIUM
     Dosage: 40 MG, QD
     Route: 064
     Dates: start: 201712

REACTIONS (4)
  - Maternal exposure during pregnancy [Fatal]
  - Microgenia [Fatal]
  - Cleft lip and palate [Fatal]
  - Limb reduction defect [Fatal]

NARRATIVE: CASE EVENT DATE: 201712
